FAERS Safety Report 9069351 (Version 1)
Quarter: 2013Q1

REPORT INFORMATION
  Report Type: Spontaneous
  Country: US (occurrence: US)
  Receive Date: 20130215
  Receipt Date: 20130215
  Transmission Date: 20140127
  Serious: Yes (Other)
  Sender: FDA-Public Use
  Company Number: US-PFIZER INC-2013058127

PATIENT
  Age: 47 Year
  Sex: Female
  Weight: 67.12 kg

DRUGS (6)
  1. CHANTIX [Suspect]
     Indication: SMOKING CESSATION THERAPY
     Dosage: 0.5 MG, 1X/DAY
     Route: 048
     Dates: start: 2006, end: 2006
  2. CHANTIX [Suspect]
     Dosage: 1 MG, 2X/DAY
     Route: 048
     Dates: start: 2006, end: 2006
  3. CHANTIX [Suspect]
     Dosage: 1MG IN MORNING AND 0.5MG IN NIGHT
     Route: 048
     Dates: start: 2006, end: 2006
  4. SYNTHROID [Concomitant]
     Indication: HYPOTHYROIDISM
     Dosage: UNK
     Route: 048
  5. ADDERALL [Concomitant]
     Indication: ATTENTION DEFICIT/HYPERACTIVITY DISORDER
     Dosage: UNK
  6. ADDERALL [Concomitant]
     Indication: POST-TRAUMATIC STRESS DISORDER

REACTIONS (1)
  - Joint injury [Not Recovered/Not Resolved]
